FAERS Safety Report 5339802-6 (Version None)
Quarter: 2007Q2

REPORT INFORMATION
  Report Type: 
  Country: None (occurrence: None)
  Receive Date: 20070525
  Receipt Date: 20070516
  Transmission Date: 20071010
  Serious: Yes (Hospitalization)
  Sender: FDA-Public Use
  Company Number: B0472060A

PATIENT
  Age: 66 Year
  Sex: Male

DRUGS (7)
  1. DIGOXIN [Suspect]
     Dosage: .125 MG / PER DAY
  2. WARFARIN SODIUM [Concomitant]
  3. CARVEDILOL [Concomitant]
  4. PRAVASTATIN [Concomitant]
  5. EPOGEN [Concomitant]
  6. CALCITRIOL [Concomitant]
  7. PANTOPRAZOLE SODIUM [Concomitant]

REACTIONS (11)
  - ANAEMIA [None]
  - ASTHENIA [None]
  - ATRIOVENTRICULAR BLOCK [None]
  - BLOOD CREATININE INCREASED [None]
  - BLOOD POTASSIUM INCREASED [None]
  - DIZZINESS [None]
  - HAEMODIALYSIS [None]
  - HEART RATE IRREGULAR [None]
  - NODAL RHYTHM [None]
  - THERAPEUTIC AGENT TOXICITY [None]
  - VISUAL DISTURBANCE [None]
